FAERS Safety Report 4483523-9 (Version None)
Quarter: 2004Q4

REPORT INFORMATION
  Report Type: 
  Country: None (occurrence: None)
  Receive Date: 20041019
  Receipt Date: 20041019
  Transmission Date: 20050328
  Serious: Yes (Life-Threatening)
  Sender: FDA-Public Use
  Company Number: None

PATIENT
  Sex: Male

DRUGS (12)
  1. HEPARIN [Suspect]
     Indication: AORTIC VALVE REPLACEMENT
  2. APAP TAB [Concomitant]
  3. COMBIVENT [Concomitant]
  4. APHOTERICIN B LIPOSOME [Concomitant]
  5. CEFTRIAXONE SODIUM [Concomitant]
  6. FAMOTIDINE [Concomitant]
  7. FENTANYL [Concomitant]
  8. FLUNISOLIDE [Concomitant]
  9. METRONIDAZOLE [Concomitant]
  10. MORPHINE [Concomitant]
  11. NOREPINEPHRINE [Concomitant]
  12. PRIMASATE [Concomitant]

REACTIONS (1)
  - THROMBOCYTOPENIA [None]
